FAERS Safety Report 8957006 (Version 1)
Quarter: 2012Q4

REPORT INFORMATION
  Report Type: 
  Country: US (occurrence: US)
  Receive Date: 20121211
  Receipt Date: 20121211
  Transmission Date: 20130627
  Serious: Yes (Life-Threatening, Hospitalization)
  Sender: FDA-Public Use
  Company Number: US-BAYER-2012-128826

PATIENT
  Age: 15 Year
  Sex: Female

DRUGS (5)
  1. YASMIN [Suspect]
     Indication: BIRTH CONTROL
  2. ALBUTEROL [Concomitant]
     Indication: ASTHMA
  3. ADVAIR [Concomitant]
     Indication: ASTHMA
     Dosage: 100/50
  4. PREDNISONE [Concomitant]
     Dosage: 10 mg, 2 tablets every day for threedays then 1tablet everyday for 6 days
     Route: 048
  5. FLONASE [Concomitant]
     Dosage: 0.05 %, 16gm,  Inhale 1 spray BID before
     Route: 045

REACTIONS (2)
  - Deep vein thrombosis [None]
  - Pulmonary embolism [None]
